FAERS Safety Report 8496491-X (Version None)
Quarter: 2012Q3

REPORT INFORMATION
  Report Type: 
  Country: None (occurrence: None)
  Receive Date: 20120709
  Receipt Date: 20120628
  Transmission Date: 20120928
  Serious: Yes (Hospitalization, Other)
  Sender: FDA-Public Use
  Company Number: JP-CELGENEUS-087-50794-11110880

PATIENT
  Sex: Male
  Weight: 57 kg

DRUGS (67)
  1. VIDAZA [Suspect]
     Dosage: 75 MILLIGRAM/SQ. METER
     Route: 058
     Dates: start: 20110725, end: 20110731
  2. OMEPRAZOLE [Concomitant]
     Dosage: 20 MILLIGRAM
     Route: 048
     Dates: end: 20120606
  3. MEROPENEM [Concomitant]
     Dosage: 2 GRAM
     Route: 041
     Dates: end: 20110726
  4. BETAMETHASONE SODIUM PHOSPHATE [Concomitant]
     Route: 065
     Dates: start: 20111003
  5. CELEBREX [Concomitant]
     Route: 065
     Dates: start: 20111117, end: 20120321
  6. KETOPROFEN [Concomitant]
     Route: 065
     Dates: start: 20120130
  7. ZYVOX [Concomitant]
     Route: 065
     Dates: start: 20120319, end: 20120604
  8. HABEKACIN [Concomitant]
     Route: 065
     Dates: start: 20120312, end: 20120315
  9. MEROPENEM [Concomitant]
     Route: 065
     Dates: start: 20111125, end: 20111201
  10. MAXIPIME [Concomitant]
     Route: 065
     Dates: start: 20110927, end: 20120530
  11. TIEPENEM [Concomitant]
     Dosage: 1 GRAM
     Route: 041
     Dates: start: 20110822, end: 20110829
  12. ALLEGRA OD [Concomitant]
     Route: 065
     Dates: start: 20111117, end: 20120223
  13. TRAMADOL HYDROCHLORIDE [Concomitant]
     Route: 065
     Dates: start: 20120131
  14. ATARAX [Concomitant]
     Route: 065
     Dates: start: 20120608, end: 20120608
  15. VIDAZA [Suspect]
     Dosage: 75 MILLIGRAM/SQ. METER
     Route: 058
     Dates: start: 20111024, end: 20111030
  16. VIDAZA [Suspect]
     Dosage: 75 MILLIGRAM/SQ. METER
     Route: 058
     Dates: start: 20111121, end: 20111127
  17. VIDAZA [Suspect]
     Dosage: 75 MILLIGRAM/SQ. METER
     Route: 058
     Dates: start: 20111219, end: 20111225
  18. VIDAZA [Suspect]
     Dosage: 75 MILLIGRAM/SQ. METER
     Route: 058
     Dates: start: 20120501, end: 20120507
  19. ACETAMINOPHEN [Concomitant]
     Route: 048
     Dates: end: 20120606
  20. SENNOSIDE [Concomitant]
     Dosage: 24 MILLIGRAM
     Route: 048
     Dates: end: 20110728
  21. FAROM [Concomitant]
     Route: 065
     Dates: start: 20120405, end: 20120606
  22. VOLTAREN [Concomitant]
     Route: 065
     Dates: start: 20111222
  23. ADONA [Concomitant]
     Route: 065
     Dates: start: 20120312, end: 20120606
  24. PREDNISOLONE [Concomitant]
     Route: 065
     Dates: start: 20120203, end: 20120606
  25. FENTANYL CITRATE [Concomitant]
     Route: 065
     Dates: start: 20120210, end: 20120606
  26. SODIUM PICOSULFATE HYDRATE [Concomitant]
     Route: 065
     Dates: start: 20120211
  27. FULMETA [Concomitant]
     Route: 065
     Dates: start: 20120316
  28. MORPHINE HYDROCHLORIDE [Concomitant]
     Route: 065
     Dates: start: 20120606, end: 20120608
  29. BOSMIN [Concomitant]
     Route: 065
     Dates: start: 20120608, end: 20120608
  30. MAGMITT [Concomitant]
     Dosage: 330 MILLIGRAM
     Route: 048
     Dates: end: 20120606
  31. FLUCONAZOLE [Concomitant]
     Dosage: 100 MILLIGRAM
     Route: 048
     Dates: end: 20120606
  32. RESTAMIN [Concomitant]
     Route: 065
     Dates: start: 20110802
  33. OXYCODONE HYDROCHLORIDE [Concomitant]
     Route: 065
     Dates: start: 20120202
  34. OXYCONTIN [Concomitant]
     Route: 065
     Dates: start: 20120207
  35. ARASENA-A [Concomitant]
     Route: 065
     Dates: start: 20120216
  36. VIDAZA [Suspect]
     Dosage: 75 MILLIGRAM/SQ. METER
     Route: 058
     Dates: start: 20110829, end: 20110904
  37. LEVOFLOXACIN [Concomitant]
     Route: 065
     Dates: start: 20110909, end: 20111014
  38. SENNOSIDE [Concomitant]
     Route: 065
     Dates: start: 20120208
  39. MEROPENEM [Concomitant]
     Route: 065
     Dates: start: 20120202, end: 20120608
  40. KINDAVATE [Concomitant]
     Route: 065
     Dates: start: 20120323
  41. ZOSYN [Concomitant]
     Route: 065
     Dates: start: 20120210, end: 20120217
  42. CUBICIN [Concomitant]
     Route: 065
     Dates: start: 20120217, end: 20120226
  43. VANCOMYCIN [Concomitant]
     Route: 065
     Dates: start: 20120227, end: 20120608
  44. DECADRON [Concomitant]
     Route: 065
     Dates: start: 20120208, end: 20120208
  45. VITAMEDIN [Concomitant]
     Route: 065
     Dates: start: 20120319
  46. VIDAZA [Suspect]
     Dosage: 75 MILLIGRAM/SQ. METER
     Route: 058
     Dates: start: 20110926, end: 20111002
  47. RESTAMIN [Concomitant]
     Route: 065
     Dates: start: 20111007
  48. RAMELTEON [Concomitant]
     Route: 065
     Dates: start: 20120501, end: 20120507
  49. MS-ONSHIPPU [Concomitant]
     Route: 065
     Dates: start: 20120128
  50. ZONISAMIDE [Concomitant]
     Route: 065
     Dates: start: 20120316, end: 20120323
  51. VIDAZA [Suspect]
     Dosage: 75 MILLIGRAM/SQ. METER
     Route: 058
     Dates: start: 20120213, end: 20120219
  52. LEVOFLOXACIN [Concomitant]
     Dosage: 500 MILLIGRAM
     Route: 048
     Dates: start: 20110726, end: 20110810
  53. LEVOFLOXACIN [Concomitant]
     Route: 065
     Dates: start: 20110830, end: 20110905
  54. MAXIPIME [Concomitant]
     Dosage: 4 GRAM
     Route: 048
     Dates: start: 20110810, end: 20110822
  55. FAROM [Concomitant]
     Route: 065
     Dates: start: 20111202, end: 20120113
  56. PRIMPERAN TAB [Concomitant]
     Route: 065
     Dates: start: 20120329
  57. LECICARBON [Concomitant]
     Route: 065
     Dates: start: 20120405
  58. TARGOCID [Concomitant]
     Route: 065
     Dates: start: 20120316, end: 20120319
  59. HYDROCORTONE [Concomitant]
     Route: 065
     Dates: start: 20120210, end: 20120608
  60. FAMOTIDINE [Concomitant]
     Route: 065
     Dates: start: 20120607, end: 20120608
  61. VIDAZA [Suspect]
     Dosage: 75 MILLIGRAM/SQ. METER
     Route: 058
     Dates: start: 20120116, end: 20120122
  62. KETOPROFEN [Concomitant]
     Route: 065
     Dates: start: 20111117
  63. TRANSAMINE CAP [Concomitant]
     Route: 065
     Dates: start: 20120312, end: 20120606
  64. WHITE PETROLATUM [Concomitant]
     Route: 065
     Dates: start: 20120521
  65. EXJADE [Concomitant]
     Route: 065
     Dates: start: 20120118
  66. LOXOPROFEN [Concomitant]
     Route: 065
     Dates: start: 20120131
  67. XYLOCAINE [Concomitant]
     Route: 065
     Dates: start: 20120208, end: 20120208

REACTIONS (15)
  - FEBRILE NEUTROPENIA [None]
  - NEUTROPHIL COUNT DECREASED [None]
  - ARTHRITIS [None]
  - CONVULSION [None]
  - RHINORRHOEA [None]
  - DISSEMINATED INTRAVASCULAR COAGULATION [None]
  - TENDONITIS [None]
  - SUBCUTANEOUS ABSCESS [None]
  - MYOCARDIAC ABSCESS [None]
  - INJECTION SITE REACTION [None]
  - PERICARDITIS [None]
  - RASH [None]
  - C-REACTIVE PROTEIN INCREASED [None]
  - HYPONATRAEMIA [None]
  - ORAL HERPES [None]
